FAERS Safety Report 24283770 (Version 3)
Quarter: 2025Q1

REPORT INFORMATION
  Report Type: Spontaneous
  Country: US (occurrence: US)
  Receive Date: 20240905
  Receipt Date: 20250131
  Transmission Date: 20250409
  Serious: No
  Sender: SANOFI AVENTIS
  Company Number: US-SANOFI-02201614

PATIENT
  Age: 1 Year
  Sex: Male
  Weight: 9.53 kg

DRUGS (4)
  1. DUPIXENT [Suspect]
     Active Substance: DUPILUMAB
     Indication: Dermatitis atopic
     Dosage: 200 MG, Q4W
     Route: 058
     Dates: start: 20240828, end: 2024
  2. DUPIXENT [Suspect]
     Active Substance: DUPILUMAB
     Indication: Dermatitis atopic
     Dosage: 200 MG, Q4W
     Route: 058
     Dates: start: 202409
  3. DUPIXENT [Suspect]
     Active Substance: DUPILUMAB
     Indication: Eczema
  4. PENICILLIN [Suspect]
     Active Substance: PENICILLIN

REACTIONS (4)
  - Erythema [Unknown]
  - Therapeutic response shortened [Unknown]
  - Drug hypersensitivity [Unknown]
  - Off label use of device [Unknown]

NARRATIVE: CASE EVENT DATE: 20240101
